FAERS Safety Report 5284840-5 (Version None)
Quarter: 2007Q1

REPORT INFORMATION
  Report Type: 
  Country: None (occurrence: None)
  Receive Date: 20070328
  Receipt Date: 20070321
  Transmission Date: 20070707
  Serious: Yes (Hospitalization)
  Sender: FDA-Public Use
  Company Number: 6031281

PATIENT
  Sex: Female

DRUGS (2)
  1. CARDENSIEL 5 MG/(TABLETS) (BISOPROLOL FUMARATE) [Suspect]
     Indication: DRUG USE FOR UNKNOWN INDICATION
     Dosage: 10 MG (5 MG, 2 IN 1 D) ORAL
     Route: 048
     Dates: start: 20070112, end: 20070126
  2. AVANDIA [Suspect]
     Indication: DRUG USE FOR UNKNOWN INDICATION
     Dosage: 4 MG (4 MG, 1 D) ORAL
     Route: 048
     Dates: start: 20041122, end: 20070126

REACTIONS (9)
  - ACUTE PULMONARY OEDEMA [None]
  - ATRIAL FIBRILLATION [None]
  - BRAIN NATRIURETIC PEPTIDE ABNORMAL [None]
  - CARDIAC FAILURE [None]
  - CARDIOACTIVE DRUG LEVEL ABOVE THERAPEUTIC [None]
  - GASTROINTESTINAL DISORDER [None]
  - OEDEMA PERIPHERAL [None]
  - OVERDOSE [None]
  - WEIGHT INCREASED [None]
